FAERS Safety Report 17468117 (Version 1)
Quarter: 2020Q1

REPORT INFORMATION
  Report Type: Spontaneous
  Country: US (occurrence: US)
  Receive Date: 20200227
  Receipt Date: 20200227
  Transmission Date: 20200409
  Serious: Yes (Other)
  Sender: FDA-Public Use
  Company Number: None

PATIENT
  Age: 46 Year
  Sex: Female
  Weight: 60.3 kg

DRUGS (1)
  1. ESTAZOLAM 2 MG TABLETS [Suspect]
     Active Substance: ESTAZOLAM
     Indication: INSOMNIA
     Dosage: ?          QUANTITY:45 TABLET(S);?
     Route: 048

REACTIONS (5)
  - Condition aggravated [None]
  - Insomnia [None]
  - Drug ineffective [None]
  - Product complaint [None]
  - Product substitution issue [None]

NARRATIVE: CASE EVENT DATE: 20200222
